FAERS Safety Report 19390794 (Version 3)
Quarter: 2022Q1

REPORT INFORMATION
  Report Type: Spontaneous
  Country: US (occurrence: US)
  Receive Date: 20210608
  Receipt Date: 20220314
  Transmission Date: 20220423
  Serious: Yes (Hospitalization, Other)
  Sender: FDA-Public Use
  Company Number: US-SA-SAC20210604000718

PATIENT
  Sex: Female

DRUGS (18)
  1. DUPIXENT [Suspect]
     Active Substance: DUPILUMAB
     Indication: Dermatitis atopic
     Dosage: 600MG, 1X
     Route: 058
     Dates: start: 202105, end: 202105
  2. DUPIXENT [Suspect]
     Active Substance: DUPILUMAB
     Indication: Idiopathic urticaria
     Dosage: 300 MG, QOW
     Route: 058
     Dates: start: 202105, end: 2021
  3. NYSTOP [Concomitant]
     Active Substance: NYSTATIN
  4. PROCTOZONE HC [Concomitant]
     Active Substance: HYDROCORTISONE
  5. HYDROCORTISONE [Concomitant]
     Active Substance: HYDROCORTISONE
  6. TACROLIMUS [Concomitant]
     Active Substance: TACROLIMUS
  7. PREVIDENT [Concomitant]
     Active Substance: SODIUM FLUORIDE
  8. MOMETASONE FUROATE [Concomitant]
     Active Substance: MOMETASONE FUROATE
  9. TERCONAZOLE [Concomitant]
     Active Substance: TERCONAZOLE
  10. BENZONATATE [Concomitant]
     Active Substance: BENZONATATE
  11. BUPROPION HYDROCHLORIDE [Concomitant]
     Active Substance: BUPROPION HYDROCHLORIDE
  12. FLUOCINONIDE [Concomitant]
     Active Substance: FLUOCINONIDE
  13. TRIAMCINOLONE ACETONIDE [Concomitant]
     Active Substance: TRIAMCINOLONE ACETONIDE
  14. UREA [Concomitant]
     Active Substance: UREA
  15. AMITRIPTYLINE [Concomitant]
     Active Substance: AMITRIPTYLINE
  16. FLUCONAZOLE [Concomitant]
     Active Substance: FLUCONAZOLE
  17. ALCLOMETASONE DIPROPIONATE [Concomitant]
     Active Substance: ALCLOMETASONE DIPROPIONATE
  18. LEVOFLOXACIN [Concomitant]
     Active Substance: LEVOFLOXACIN

REACTIONS (8)
  - Pyrexia [Unknown]
  - Still^s disease [Unknown]
  - Lymphadenopathy [Unknown]
  - Erythema [Unknown]
  - Pain [Unknown]
  - Oropharyngeal pain [Unknown]
  - Rash [Unknown]
  - Product use in unapproved indication [Unknown]

NARRATIVE: CASE EVENT DATE: 20210501
